FAERS Safety Report 14157513 (Version 1)
Quarter: 2017Q4

REPORT INFORMATION
  Report Type: Report from Study
  Country: MX (occurrence: MX)
  Receive Date: 20171103
  Receipt Date: 20171103
  Transmission Date: 20180321
  Serious: Yes (Other)
  Sender: FDA-Public Use
  Company Number: PHHY2017MX161882

PATIENT
  Age: 88 Year
  Sex: Female

DRUGS (3)
  1. ENTRESTO [Concomitant]
     Active Substance: SACUBITRIL\VALSARTAN
     Indication: HYPERTENSION
     Dosage: 2 DF (1 EVERY 12 HOURS), QD
     Route: 048
     Dates: start: 201709
  2. SPIRIVA [Concomitant]
     Active Substance: TIOTROPIUM BROMIDE MONOHYDRATE
     Indication: BRONCHITIS
     Dosage: 1 DF, QD
     Route: 055
     Dates: start: 201701
  3. IRFLOSOL [Suspect]
     Active Substance: FLUTICASONE PROPIONATE\SALMETEROL XINAFOATE
     Indication: BRONCHITIS
     Dosage: 1 DF, QD
     Route: 055
     Dates: start: 201707

REACTIONS (2)
  - Condition aggravated [Unknown]
  - Brain hypoxia [Unknown]

NARRATIVE: CASE EVENT DATE: 201708
